FAERS Safety Report 6183258-0 (Version None)
Quarter: 2009Q2

REPORT INFORMATION
  Report Type: 
  Country: None (occurrence: None)
  Receive Date: 20090506
  Receipt Date: 20090417
  Transmission Date: 20091009
  Serious: Yes (Hospitalization, Other)
  Sender: FDA-Public Use
  Company Number: ACO_00544_2009

PATIENT
  Sex: Female
  Weight: 72 kg

DRUGS (2)
  1. TIZANIDINE HCL [Suspect]
     Indication: MUSCULOSKELETAL STIFFNESS
     Dosage: (2 MG ORAL)
     Route: 048
     Dates: start: 20090407, end: 20090409
  2. LOXONIN /00890702/ (LOXONIN) (NOT SPECIFIED) [Suspect]
     Indication: TENSION HEADACHE
     Dosage: (ORAL)
     Route: 048
     Dates: start: 20090407, end: 20090409

REACTIONS (9)
  - CONVULSION [None]
  - DIZZINESS [None]
  - DYSSTASIA [None]
  - EYE MOVEMENT DISORDER [None]
  - HEADACHE [None]
  - HEART RATE INCREASED [None]
  - LOSS OF CONSCIOUSNESS [None]
  - POLYCYTHAEMIA [None]
  - PYREXIA [None]
